FAERS Safety Report 6374416-0 (Version None)
Quarter: 2009Q3

REPORT INFORMATION
  Report Type: 
  Country: None (occurrence: None)
  Receive Date: 20090921
  Receipt Date: 20090921
  Transmission Date: 20100115
  Serious: No
  Sender: FDA-Public Use
  Company Number: None

PATIENT

DRUGS (1)
  1. TAMIFLU [Suspect]
     Dosage: 10 COUNT BOTTLE

REACTIONS (8)
  - ARTHRALGIA [None]
  - DECREASED APPETITE [None]
  - DIARRHOEA [None]
  - HEADACHE [None]
  - MALAISE [None]
  - PYREXIA [None]
  - TONGUE BLISTERING [None]
  - TONGUE HAEMORRHAGE [None]
